FAERS Safety Report 7817725-8 (Version None)
Quarter: 2011Q4

REPORT INFORMATION
  Report Type: 
  Country: None (occurrence: None)
  Receive Date: 20111017
  Receipt Date: 20111014
  Transmission Date: 20120403
  Serious: Yes (Other)
  Sender: FDA-Public Use
  Company Number: US-JNJFOC-20110810155

PATIENT
  Sex: Female
  Weight: 62.13 kg

DRUGS (6)
  1. MULTI-VITAMINS [Concomitant]
     Indication: PRODUCT USED FOR UNKNOWN INDICATION
     Route: 065
  2. ALBUTEROL [Concomitant]
     Indication: PRODUCT USED FOR UNKNOWN INDICATION
     Route: 065
  3. ADVAIR DISKUS 100/50 [Suspect]
     Indication: ASTHMA
     Dosage: 250/50 MCG ONE PUFF TWICE A DAY
     Route: 065
     Dates: start: 20110101
  4. NICOTROL [Suspect]
     Indication: SMOKING CESSATION THERAPY
     Route: 065
     Dates: start: 20040101
  5. DARVOCET [Suspect]
     Indication: BACK PAIN
     Route: 048
  6. BROMHEXINE ETOFYLLINE SALBUTAMOL [Concomitant]
     Indication: PRODUCT USED FOR UNKNOWN INDICATION
     Route: 065

REACTIONS (7)
  - DYSPNOEA [None]
  - BLOOD CHOLESTEROL INCREASED [None]
  - MYOCARDIAL INFARCTION [None]
  - STRESS [None]
  - NICOTINE DEPENDENCE [None]
  - WEIGHT INCREASED [None]
  - HYPERPHAGIA [None]
